FAERS Safety Report 9364458 (Version 1)
Quarter: 2013Q2

REPORT INFORMATION
  Report Type: Spontaneous
  Country: JP (occurrence: JP)
  Receive Date: 20130624
  Receipt Date: 20130624
  Transmission Date: 20140414
  Serious: Yes (Hospitalization, Other)
  Sender: FDA-Public Use
  Company Number: JP-WATSON-2013-10711

PATIENT
  Age: 47 Year
  Sex: Female

DRUGS (4)
  1. IMATINIB (UNKNOWN) [Suspect]
     Indication: CHRONIC MYELOID LEUKAEMIA
     Dosage: 2000 MG, SINGLE
     Route: 048
  2. IMATINIB (UNKNOWN) [Suspect]
     Indication: SUICIDE ATTEMPT
     Dosage: 400 MG, DAILY
     Route: 065
  3. TRIAZOLAM (WATSON LABORATORIES) [Suspect]
     Indication: SUICIDE ATTEMPT
     Dosage: 3.5 MG, SINGLE
     Route: 048
  4. BROTIZOLAM [Suspect]
     Indication: SUICIDE ATTEMPT
     Dosage: 12.5 MG, SINGLE
     Route: 048

REACTIONS (8)
  - Coma [Recovered/Resolved]
  - Muscle spasms [Unknown]
  - Gastrointestinal hypomotility [Unknown]
  - Blood creatine phosphokinase increased [Unknown]
  - Oedema [Recovered/Resolved]
  - Myalgia [Recovered/Resolved]
  - Nausea [Recovered/Resolved]
  - Overdose [Recovered/Resolved]
